FAERS Safety Report 22218312 (Version 1)
Quarter: 2023Q2

REPORT INFORMATION
  Report Type: Spontaneous
  Country: US (occurrence: None)
  Receive Date: 20230414
  Receipt Date: 20230414
  Transmission Date: 20230721
  Serious: Yes (Life-Threatening, Hospitalization, Disabling, Other)
  Sender: FDA-Public Use
  Company Number: None

PATIENT
  Age: 22 Year
  Sex: Female
  Weight: 63 kg

DRUGS (11)
  1. XANAX [Suspect]
     Active Substance: ALPRAZOLAM
     Indication: Anxiety
     Dates: start: 20120501, end: 20151104
  2. XANAX [Suspect]
     Active Substance: ALPRAZOLAM
     Indication: Panic disorder
  3. KLONOPIN [Suspect]
     Active Substance: CLONAZEPAM
     Indication: Anxiety
     Dates: end: 20220329
  4. FUROSEMIDE [Concomitant]
     Active Substance: FUROSEMIDE
  5. POTASSIUM GLUCONATE [Concomitant]
     Active Substance: POTASSIUM GLUCONATE
  6. VITAMIN C [Concomitant]
     Active Substance: ASCORBIC ACID
  7. Iron (Ferrous Sulfate) [Concomitant]
  8. Elemental Iron [Concomitant]
  9. TYLENOL [Concomitant]
     Active Substance: ACETAMINOPHEN
  10. VITAMIN D3 [Concomitant]
     Active Substance: CHOLECALCIFEROL
  11. ASPIRIN [Concomitant]
     Active Substance: ASPIRIN

REACTIONS (33)
  - Vomiting [None]
  - Feeding disorder [None]
  - Mobility decreased [None]
  - Loss of personal independence in daily activities [None]
  - Amnesia [None]
  - Withdrawal syndrome [None]
  - Weight decreased [None]
  - Tinnitus [None]
  - Akathisia [None]
  - Seizure [None]
  - Suicidal ideation [None]
  - Insomnia [None]
  - Abdominal distension [None]
  - Rash [None]
  - Dry eye [None]
  - Oropharyngeal pain [None]
  - Decreased appetite [None]
  - Dysphagia [None]
  - Night sweats [None]
  - Dyspnoea [None]
  - Muscular weakness [None]
  - Paraesthesia [None]
  - Pain [None]
  - Nightmare [None]
  - Vulvovaginal mycotic infection [None]
  - Chest pain [None]
  - Thirst [None]
  - Paraesthesia oral [None]
  - Micturition urgency [None]
  - Body temperature abnormal [None]
  - Headache [None]
  - Brain fog [None]
  - Cheilitis [None]

NARRATIVE: CASE EVENT DATE: 20130211
